FAERS Safety Report 11619123 (Version 1)
Quarter: 2015Q4

REPORT INFORMATION
  Report Type: Spontaneous
  Country: JP (occurrence: JP)
  Receive Date: 20151012
  Receipt Date: 20151012
  Transmission Date: 20160304
  Serious: Yes (Other)
  Sender: FDA-Public Use
  Company Number: PHJP2015JP017186

PATIENT
  Age: 70 Year
  Sex: Male

DRUGS (1)
  1. VOLTAREN TAPE [Suspect]
     Active Substance: DICLOFENAC SODIUM
     Indication: ANALGESIC THERAPY
     Dosage: UNK
     Route: 062

REACTIONS (2)
  - Gastric ulcer [Unknown]
  - Syncope [Unknown]
